FAERS Safety Report 6691003-5 (Version None)
Quarter: 2010Q2

REPORT INFORMATION
  Report Type: 
  Country: None (occurrence: None)
  Receive Date: 20100421
  Receipt Date: 20100414
  Transmission Date: 20101027
  Serious: Yes (Life-Threatening)
  Sender: FDA-Public Use
  Company Number: GB-MERCK-1004GBR00036

PATIENT
  Age: 55 Year
  Sex: Male
  Weight: 140 kg

DRUGS (7)
  1. JANUVIA [Suspect]
     Indication: TYPE 2 DIABETES MELLITUS
     Route: 048
     Dates: start: 20100301, end: 20100326
  2. BECLOMETHASONE DIPROPIONATE [Concomitant]
     Route: 065
  3. GLICLAZIDE [Concomitant]
     Route: 065
  4. RAMIPRIL [Concomitant]
     Route: 065
  5. ALBUTEROL [Concomitant]
     Route: 065
  6. ZOCOR [Concomitant]
     Route: 048
  7. TIOTROPIUM BROMIDE [Concomitant]
     Route: 065

REACTIONS (2)
  - BETA HAEMOLYTIC STREPTOCOCCAL INFECTION [None]
  - HYPOTENSION [None]
